FAERS Safety Report 8434230-9 (Version None)
Quarter: 2012Q2

REPORT INFORMATION
  Report Type: 
  Country: None (occurrence: None)
  Receive Date: 20120613
  Receipt Date: 20120611
  Transmission Date: 20120825
  Serious: No
  Sender: FDA-Public Use
  Company Number: US-B.I. PHARMACEUTICALS,INC./RIDGEFIELD-2011-BP-18243BP

PATIENT
  Sex: Female
  Weight: 90.72 kg

DRUGS (44)
  1. TRILIPIX [Concomitant]
     Dosage: 135 MG
     Route: 048
     Dates: start: 20110203
  2. FLOVENT [Concomitant]
     Route: 055
     Dates: start: 20110526
  3. HYPER-SOL [Concomitant]
     Route: 055
     Dates: start: 20110526
  4. METOPROLOL TARTRATE [Concomitant]
     Indication: BLOOD PRESSURE
     Dosage: 50 MG
     Route: 048
     Dates: start: 20110203
  5. LOVAZA [Concomitant]
     Dosage: 4 G
     Route: 048
     Dates: start: 20110630
  6. ALBUTEROL [Concomitant]
     Route: 055
     Dates: start: 20110505
  7. ATROVENT [Concomitant]
     Indication: BRONCHITIS
     Dosage: 17 MCG
     Route: 055
     Dates: start: 20101101
  8. ATARAX [Concomitant]
  9. BENADRYL [Concomitant]
  10. MIRALAX [Concomitant]
  11. TRADJENTA [Suspect]
     Indication: TYPE 2 DIABETES MELLITUS
     Dosage: 5 MG
     Route: 048
     Dates: start: 20110630, end: 20110714
  12. MAGNESIUM [Concomitant]
     Indication: MINERAL SUPPLEMENTATION
     Dosage: 250 MG
     Route: 048
  13. VITAMIN D [Concomitant]
     Indication: VITAMIN SUPPLEMENTATION
     Dosage: 2000 MG
     Route: 048
  14. CEFUROXIME [Concomitant]
  15. IBUPROFEN [Concomitant]
  16. CETIRIZINE [Concomitant]
  17. ALLEGRA [Concomitant]
     Dosage: 180 MG
  18. CEFTIN [Concomitant]
     Route: 055
     Dates: start: 20110526
  19. HYPER-SOL [Concomitant]
  20. POTASSIUM [Concomitant]
     Indication: MINERAL SUPPLEMENTATION
     Dosage: 99 MG
     Route: 048
  21. ASCORBIC ACID [Concomitant]
     Indication: VITAMIN SUPPLEMENTATION
     Dosage: 1000 MG
     Route: 048
     Dates: start: 20100624
  22. STOOL SOFTENER [Concomitant]
  23. OMEPRAZOLE [Concomitant]
     Indication: GASTROOESOPHAGEAL REFLUX DISEASE
     Dosage: 40 MG
     Route: 048
     Dates: start: 20110203
  24. LOVAZA [Concomitant]
     Dosage: 2 MG
     Route: 048
  25. ALBUTEROL [Concomitant]
     Indication: BRONCHITIS
     Route: 055
     Dates: start: 20101101
  26. MULTI-VITAMIN [Concomitant]
     Indication: VITAMIN SUPPLEMENTATION
     Route: 048
  27. CALCIUM+D [Concomitant]
     Route: 048
     Dates: start: 20100624
  28. GABAPENTIN [Concomitant]
     Dosage: 600 MG
     Dates: start: 20110203
  29. VENTOLIN [Concomitant]
     Dates: start: 20110203
  30. NASONEX [Concomitant]
  31. METFORMIN HCL [Concomitant]
  32. CEFTIN [Concomitant]
  33. GLUCOPHAGE [Concomitant]
     Indication: TYPE 2 DIABETES MELLITUS
     Dosage: 2000 MG
     Route: 048
     Dates: start: 20100311
  34. ATROVENT [Concomitant]
     Dosage: 17 MCG
     Route: 055
     Dates: start: 20110526
  35. SENNA-MINT WAF [Concomitant]
  36. ASPIRIN [Concomitant]
     Indication: PAIN
     Dosage: 325 MG
     Route: 048
     Dates: start: 20110203
  37. PRAVACHOL [Concomitant]
     Indication: BLOOD CHOLESTEROL
     Dosage: 20 MG
     Route: 048
     Dates: start: 20110203
  38. FLOVENT [Concomitant]
     Indication: BRONCHITIS
     Route: 055
     Dates: start: 20110630
  39. SOVAGA [Concomitant]
     Dosage: 1 G
  40. IRON [Concomitant]
     Dosage: 1300 MG
  41. SYNTHROID [Concomitant]
     Indication: SUPPLEMENTATION THERAPY
     Dosage: 112 MCG
     Route: 048
     Dates: start: 20110203
  42. FLUTICASONE FUROATE [Concomitant]
     Indication: BRONCHITIS
     Route: 055
     Dates: start: 20101101
  43. ACTOS [Concomitant]
     Dosage: 30 MG
  44. FLEXAMIN [Concomitant]
     Dosage: 60 MG

REACTIONS (5)
  - RASH GENERALISED [None]
  - BLISTER [None]
  - ECZEMA [None]
  - SKIN EXFOLIATION [None]
  - RASH PRURITIC [None]
